FAERS Safety Report 22957620 (Version 3)
Quarter: 2024Q1

REPORT INFORMATION
  Report Type: Spontaneous
  Country: CO (occurrence: CO)
  Receive Date: 20230919
  Receipt Date: 20240121
  Transmission Date: 20240410
  Serious: Yes (Disabling, Other)
  Sender: FDA-Public Use
  Company Number: CO-002147023-NVSC2021CO134465

PATIENT
  Sex: Female
  Weight: 52 kg

DRUGS (8)
  1. COSENTYX [Suspect]
     Active Substance: SECUKINUMAB
     Dosage: 150 MG, QMO
     Route: 058
  2. COSENTYX [Suspect]
     Active Substance: SECUKINUMAB
     Dosage: 150 MG, QMO
     Route: 058
  3. COSENTYX [Suspect]
     Active Substance: SECUKINUMAB
     Indication: Ankylosing spondylitis
     Dosage: 150 MG, QMO (STARTED APPROXIMATELY 3 YEARS AGO)
     Route: 058
  4. COSENTYX [Suspect]
     Active Substance: SECUKINUMAB
     Dosage: 150 MG, QMO
     Route: 058
     Dates: start: 20180202
  5. COSENTYX [Suspect]
     Active Substance: SECUKINUMAB
     Dosage: 150 MG, QMO
     Route: 058
  6. COSENTYX [Suspect]
     Active Substance: SECUKINUMAB
     Dosage: 150 MG, QMO
     Route: 058
  7. LOSARTAN [Suspect]
     Active Substance: LOSARTAN
     Dosage: 1 DOSAGE FORM, Q12H
     Route: 065
  8. LOSARTAN [Suspect]
     Active Substance: LOSARTAN
     Indication: Hypertension
     Dosage: 50 MG, BID (EVERY 12 HOURS) (STARTED 3 MONTHS AGO) (STARTED APPROXIMATELY 12 YEARS AGO)
     Route: 048

REACTIONS (30)
  - Spinal pain [Not Recovered/Not Resolved]
  - Spinal deformity [Unknown]
  - Movement disorder [Not Recovered/Not Resolved]
  - Pain [Not Recovered/Not Resolved]
  - Hypokinesia [Not Recovered/Not Resolved]
  - Gait disturbance [Not Recovered/Not Resolved]
  - Arthritis [Not Recovered/Not Resolved]
  - Discouragement [Unknown]
  - Spinal column injury [Not Recovered/Not Resolved]
  - Opisthotonus [Unknown]
  - Nerve injury [Not Recovered/Not Resolved]
  - Feeling abnormal [Unknown]
  - Feeling of despair [Unknown]
  - Neck pain [Not Recovered/Not Resolved]
  - Major depression [Unknown]
  - Weight bearing difficulty [Unknown]
  - Exostosis [Unknown]
  - Gastritis [Unknown]
  - Pain in extremity [Unknown]
  - Musculoskeletal stiffness [Unknown]
  - Illness [Unknown]
  - Joint range of motion decreased [Unknown]
  - Disease progression [Unknown]
  - Musculoskeletal discomfort [Unknown]
  - Malaise [Unknown]
  - Dysstasia [Unknown]
  - Back pain [Unknown]
  - Off label use [Unknown]
  - Mobility decreased [Unknown]
  - Spinal disorder [Unknown]
